FAERS Safety Report 4433921-4 (Version None)
Quarter: 2004Q3

REPORT INFORMATION
  Report Type: 
  Country: None (occurrence: None)
  Receive Date: 20040825
  Receipt Date: 20040817
  Transmission Date: 20050211
  Serious: Yes (Disabling)
  Sender: FDA-Public Use
  Company Number: GBWYE913319JUL04

PATIENT
  Age: 43 Year
  Sex: Male

DRUGS (4)
  1. EFFEXOR XR [Suspect]
     Indication: DEPRESSION
     Dosage: 75 MG 1X PER 1 DAY ORAL; 150 MG 1X PER 1 DAY ORAL; 150 MG 1X PER 1 DAY ORAL
     Route: 048
     Dates: end: 20020101
  2. EFFEXOR XR [Suspect]
     Indication: DEPRESSION
     Dosage: 75 MG 1X PER 1 DAY ORAL; 150 MG 1X PER 1 DAY ORAL; 150 MG 1X PER 1 DAY ORAL
     Route: 048
     Dates: start: 19990901
  3. EFFEXOR XR [Suspect]
     Indication: DEPRESSION
     Dosage: 75 MG 1X PER 1 DAY ORAL; 150 MG 1X PER 1 DAY ORAL; 150 MG 1X PER 1 DAY ORAL
     Route: 048
     Dates: start: 20020101
  4. CITALOPRAM [Concomitant]

REACTIONS (3)
  - DEPRESSION [None]
  - DRUG INEFFECTIVE [None]
  - RHEUMATOID ARTHRITIS [None]
